FAERS Safety Report 12139984 (Version 2)
Quarter: 2016Q2

REPORT INFORMATION
  Report Type: Report from Study
  Country: US (occurrence: US)
  Receive Date: 20160303
  Receipt Date: 20160407
  Transmission Date: 20160815
  Serious: Yes (Other)
  Sender: FDA-Public Use
  Company Number: US-GILEAD-2016-0201444

PATIENT
  Age: 78 Year
  Sex: Female

DRUGS (12)
  1. ADCIRCA [Concomitant]
     Active Substance: TADALAFIL
  2. LOSARTIN [Concomitant]
     Active Substance: LOSARTAN
  3. ASPIRIN 81 [Concomitant]
     Active Substance: ASPIRIN
  4. MULTIVITAMIN                       /00097801/ [Concomitant]
     Active Substance: VITAMINS
  5. LIPITOR [Concomitant]
     Active Substance: ATORVASTATIN CALCIUM
  6. LASIX [Concomitant]
     Active Substance: FUROSEMIDE
  7. XARELTO [Concomitant]
     Active Substance: RIVAROXABAN
  8. POTASIUM M [Concomitant]
  9. COUMADIN [Concomitant]
     Active Substance: WARFARIN SODIUM
  10. AMBRISENTAN [Suspect]
     Active Substance: AMBRISENTAN
     Indication: PRODUCT USED FOR UNKNOWN INDICATION
     Dosage: 10 MG, UNK
     Route: 065
     Dates: start: 20130624
  11. SYNTHROID [Concomitant]
     Active Substance: LEVOTHYROXINE SODIUM
  12. DEXILANT [Concomitant]
     Active Substance: DEXLANSOPRAZOLE

REACTIONS (1)
  - Heart valve replacement [Recovered/Resolved]
